FAERS Safety Report 17045440 (Version 2)
Quarter: 2020Q4

REPORT INFORMATION
  Report Type: Spontaneous
  Country: CH (occurrence: CH)
  Receive Date: 20191118
  Receipt Date: 20201223
  Transmission Date: 20210113
  Serious: Yes (Other)
  Sender: FDA-Public Use
  Company Number: CH-JNJFOC-20191106732

PATIENT
  Age: 18 Year
  Sex: Female

DRUGS (28)
  1. ENTUMINE [Concomitant]
     Active Substance: CLOTHIAPINE
     Dosage: AS NECESSARY
  2. IRFEN [Concomitant]
     Active Substance: IBUPROFEN
     Dosage: AS NECESSARY
  3. RISPERDAL [Suspect]
     Active Substance: RISPERIDONE
     Route: 048
     Dates: end: 20191126
  4. DEPAKINE CHRONO [Concomitant]
     Active Substance: VALPROATE SODIUM
     Dates: start: 2018
  5. LATUDA [Concomitant]
     Active Substance: LURASIDONE HYDROCHLORIDE
     Dates: start: 20190830
  6. NICOTINELL [Concomitant]
     Active Substance: NICOTINE
  7. LAMICTAL [Concomitant]
     Active Substance: LAMOTRIGINE
     Indication: EPILEPSY
     Dates: end: 2013
  8. SEROQUEL [Concomitant]
     Active Substance: QUETIAPINE FUMARATE
     Dates: end: 2016
  9. RISPERDAL [Concomitant]
     Active Substance: RISPERIDONE
     Dosage: 2 TO 3 MG/DAY
     Dates: start: 2016, end: 2018
  10. RISPERDAL CONSTA [Suspect]
     Active Substance: RISPERIDONE
  11. LUVIT D3 [Concomitant]
     Active Substance: CHOLECALCIFEROL
  12. LAXOBERON [Concomitant]
     Active Substance: SODIUM PICOSULFATE
     Dosage: AS NECESSARY
  13. RISPERDAL CONSTA [Suspect]
     Active Substance: RISPERIDONE
  14. INVEGA [Suspect]
     Active Substance: PALIPERIDONE
     Indication: PRODUCT USED FOR UNKNOWN INDICATION
     Route: 048
     Dates: start: 20190624, end: 20190903
  15. RISPERDAL [Suspect]
     Active Substance: RISPERIDONE
     Indication: PRODUCT USED FOR UNKNOWN INDICATION
     Route: 048
     Dates: start: 20191111, end: 20191126
  16. DEPAKINE CHRONO [Concomitant]
     Active Substance: VALPROATE SODIUM
     Indication: DRUG THERAPY
     Dates: start: 2018
  17. TRANXILIUM [Concomitant]
     Active Substance: CLORAZEPATE DIPOTASSIUM
  18. HALDOL [Suspect]
     Active Substance: HALOPERIDOL
     Route: 048
     Dates: start: 201910, end: 20201021
  19. ABILIFY [Concomitant]
     Active Substance: ARIPIPRAZOLE
     Dates: start: 2018, end: 2018
  20. ABILIFY [Concomitant]
     Active Substance: ARIPIPRAZOLE
     Dates: start: 201905, end: 20190623
  21. AKINETON [Concomitant]
     Active Substance: BIPERIDEN HYDROCHLORIDE
     Dosage: AS NECESSARY
  22. BUSCOPAN [Concomitant]
     Active Substance: BUTYLSCOPOLAMINE BROMIDE
     Dosage: AS NECESSARY
  23. RISPERDAL CONSTA [Suspect]
     Active Substance: RISPERIDONE
     Indication: PRODUCT USED FOR UNKNOWN INDICATION
     Route: 030
     Dates: start: 2018, end: 2018
  24. RISPERDAL CONSTA [Suspect]
     Active Substance: RISPERIDONE
     Route: 030
     Dates: start: 2018, end: 201905
  25. DALMADORM [Concomitant]
     Active Substance: FLURAZEPAM HYDROCHLORIDE
     Dosage: AS NECESSARY
  26. PURSANA [Concomitant]
     Active Substance: FIG FRUIT OIL\SORBITOL
     Dosage: AS NECESSARY
  27. HALDOL [Suspect]
     Active Substance: HALOPERIDOL
     Indication: PRODUCT USED FOR UNKNOWN INDICATION
     Dosage: AS NECESSARY
     Route: 048
     Dates: start: 201909, end: 201909
  28. DAFALGAN [Concomitant]
     Active Substance: ACETAMINOPHEN
     Dosage: AS NECESSARY

REACTIONS (7)
  - Muscle rigidity [Recovered/Resolved]
  - Dysarthria [Recovered/Resolved]
  - Hyperprolactinaemia [Not Recovered/Not Resolved]
  - Dysarthria [Recovered/Resolved]
  - Hyperprolactinaemia [Not Recovered/Not Resolved]
  - Galactorrhoea [Recovered/Resolved]
  - Salivary hypersecretion [Recovered/Resolved]

NARRATIVE: CASE EVENT DATE: 2018
